FAERS Safety Report 24657745 (Version 1)
Quarter: 2024Q4

REPORT INFORMATION
  Report Type: Report from Study
  Country: CA (occurrence: CA)
  Receive Date: 20241125
  Receipt Date: 20241125
  Transmission Date: 20250114
  Serious: Yes (Hospitalization, Other)
  Sender: TAKEDA
  Company Number: CA-TAKEDA-2024TUS094454

PATIENT
  Sex: Female

DRUGS (3)
  1. VEDOLIZUMAB [Suspect]
     Active Substance: VEDOLIZUMAB
     Indication: Crohn^s disease
     Dosage: 300 MILLIGRAM
  2. VEDOLIZUMAB [Suspect]
     Active Substance: VEDOLIZUMAB
     Dosage: 300 MILLIGRAM
  3. PENTASA [Concomitant]
     Active Substance: MESALAMINE
     Dosage: 1 GRAM

REACTIONS (5)
  - Pneumonia [Recovered/Resolved]
  - Post procedural erythema [Recovering/Resolving]
  - Procedural pain [Recovering/Resolving]
  - Oral herpes [Recovering/Resolving]
  - Phlebitis [Recovered/Resolved]
